FAERS Safety Report 4947509-X (Version None)
Quarter: 2006Q1

REPORT INFORMATION
  Report Type: 
  Country: None (occurrence: None)
  Receive Date: 20060314
  Receipt Date: 20060302
  Transmission Date: 20060701
  Serious: Yes (Hospitalization)
  Sender: FDA-Public Use
  Company Number: 2006RL000068

PATIENT
  Age: 76 Year
  Sex: Male

DRUGS (2)
  1. NIZATIDINE [Suspect]
     Indication: GASTRIC ULCER
     Dosage: 300 MG;QD;PO
     Route: 048
     Dates: start: 20051101
  2. RABEPRAZOLE SODIUM [Concomitant]

REACTIONS (1)
  - PANCYTOPENIA [None]
